FAERS Safety Report 12194231 (Version 1)
Quarter: 2016Q1

REPORT INFORMATION
  Report Type: Spontaneous
  Country: US (occurrence: None)
  Receive Date: 20160318
  Receipt Date: 20160318
  Transmission Date: 20160526
  Serious: Yes (Other)
  Sender: FDA-Public Use
  Company Number: None

PATIENT
  Age: 35 Year
  Sex: Female

DRUGS (1)
  1. HUMIRA [Suspect]
     Active Substance: ADALIMUMAB
     Indication: PSORIASIS
     Dosage: SUBCUTANEOUS 057 40 MG INJECTION EVERY OTHER WK
     Route: 058
     Dates: start: 20160203

REACTIONS (1)
  - Contusion [None]

NARRATIVE: CASE EVENT DATE: 20160317
